FAERS Safety Report 8062831-9 (Version None)
Quarter: 2012Q1

REPORT INFORMATION
  Report Type: 
  Country: None (occurrence: None)
  Receive Date: 20120123
  Receipt Date: 20120118
  Transmission Date: 20120608
  Serious: Yes (Life-Threatening)
  Sender: FDA-Public Use
  Company Number: CN-SANOFI-AVENTIS-2012SA002367

PATIENT
  Age: 74 Year
  Sex: Female

DRUGS (7)
  1. AROTINOLOL [Concomitant]
  2. FOLIC ACID [Concomitant]
     Dates: start: 20090701
  3. ASPIRIN [Concomitant]
     Dates: end: 20061222
  4. ATORVASTATIN [Concomitant]
  5. IRON [Concomitant]
     Dates: start: 20090701
  6. CLOPIDOGREL BISULFATE [Suspect]
     Route: 065
     Dates: start: 20061222, end: 20091001
  7. CLOPIDOGREL BISULFATE [Suspect]
     Route: 065
     Dates: start: 20100326, end: 20100409

REACTIONS (7)
  - ERYTHROPOIESIS ABNORMAL [None]
  - LEUKOPENIA [None]
  - PLATELET DISORDER [None]
  - ANAEMIA [None]
  - RETICULOCYTE COUNT DECREASED [None]
  - MYELODYSPLASTIC SYNDROME [None]
  - HAEMOGLOBIN DECREASED [None]
